FAERS Safety Report 12083169 (Version 1)
Quarter: 2016Q1

REPORT INFORMATION
  Report Type: Spontaneous
  Country: US (occurrence: US)
  Receive Date: 20160217
  Receipt Date: 20160217
  Transmission Date: 20160526
  Serious: No
  Sender: FDA-Public Use
  Company Number: US-DRREDDYS-USA/USA/15/0054126

PATIENT
  Sex: Female

DRUGS (1)
  1. SUMATRIPTAN INJECTION USP, 6 MG/0.5 ML [Suspect]
     Active Substance: SUMATRIPTAN
     Indication: MIGRAINE
     Dosage: INJECT 6 MG SUBCUTANEOUSLY PRN FOR MIGRAINE. MAY REPEAT ONCE IN 8 HOURS. NTE 2 DOSES IN A 24 HOUR PE
     Route: 058
     Dates: start: 201502

REACTIONS (1)
  - Product physical issue [Unknown]
